FAERS Safety Report 6079392-6 (Version None)
Quarter: 2009Q1

REPORT INFORMATION
  Report Type: 
  Country: None (occurrence: None)
  Receive Date: 20090216
  Receipt Date: 20090205
  Transmission Date: 20090719
  Serious: Yes (Other)
  Sender: FDA-Public Use
  Company Number: DE-AMGEN-UK310715

PATIENT
  Sex: Male

DRUGS (6)
  1. PANITUMUMAB [Suspect]
     Indication: SQUAMOUS CELL CARCINOMA
     Route: 042
     Dates: start: 20080717, end: 20080904
  2. PANITUMUMAB [Suspect]
     Route: 042
     Dates: start: 20081006
  3. FLUOROURACIL [Suspect]
     Indication: CHEMOTHERAPY
     Route: 065
  4. CISPLATIN [Suspect]
     Indication: CHEMOTHERAPY
     Route: 065
  5. MEGESTROL ACETATE [Concomitant]
     Route: 065
  6. PHENOXYMETHYL PENICILLIN [Concomitant]

REACTIONS (1)
  - ERYSIPELAS [None]
